FAERS Safety Report 9537408 (Version 1)
Quarter: 2013Q3

REPORT INFORMATION
  Report Type: Spontaneous
  Country: US (occurrence: None)
  Receive Date: 20130918
  Receipt Date: 20130918
  Transmission Date: 20140515
  Serious: Yes (Disabling)
  Sender: FDA-Public Use
  Company Number: None

PATIENT
  Sex: 0

DRUGS (1)
  1. CITALOPRAM [Suspect]
     Indication: DEPRESSION
     Dosage: 20 MG ONCE DAILY TAKEN BY MOUTH
     Route: 048

REACTIONS (3)
  - Dystonia [None]
  - Bruxism [None]
  - Condition aggravated [None]
